FAERS Safety Report 9772305 (Version 3)
Quarter: 2014Q1

REPORT INFORMATION
  Report Type: Spontaneous
  Country: GB (occurrence: GB)
  Receive Date: 20131219
  Receipt Date: 20140225
  Transmission Date: 20141002
  Serious: Yes (Hospitalization)
  Sender: FDA-Public Use
  Company Number: PHFR2013GB007199

PATIENT
  Age: 47 Year
  Sex: Male

DRUGS (3)
  1. CLOZARIL [Suspect]
     Indication: SCHIZOPHRENIA
     Dosage: 500 MG, UNK
     Route: 048
     Dates: start: 20010701, end: 20131118
  2. CLOZARIL [Suspect]
     Dosage: UNK
     Route: 048
  3. VENTOLIN [Concomitant]
     Indication: ASTHMA
     Dosage: 2 DF, PRN

REACTIONS (2)
  - Alcoholism [Unknown]
  - Alcohol abuse [Recovering/Resolving]
